FAERS Safety Report 14887345 (Version 1)
Quarter: 2018Q2

REPORT INFORMATION
  Report Type: Spontaneous
  Country: US (occurrence: US)
  Receive Date: 20180513
  Receipt Date: 20180513
  Transmission Date: 20180711
  Serious: Yes (Other)
  Sender: FDA-Public Use
  Company Number: US-DRREDDYS-USA/USA/18/0098797

PATIENT
  Age: 73 Year
  Sex: Male

DRUGS (1)
  1. PANTOPRAZOLE SODIUM DR TABLETS 20MG AND  40MG [Suspect]
     Active Substance: PANTOPRAZOLE SODIUM
     Indication: PRODUCT USED FOR UNKNOWN INDICATION
     Route: 065

REACTIONS (2)
  - Gastrointestinal bacterial overgrowth [Recovered/Resolved]
  - Alpha haemolytic streptococcal infection [Recovered/Resolved]
